FAERS Safety Report 14211665 (Version 3)
Quarter: 2018Q1

REPORT INFORMATION
  Report Type: Spontaneous
  Country: US (occurrence: US)
  Receive Date: 20171121
  Receipt Date: 20180101
  Transmission Date: 20180508
  Serious: Yes (Life-Threatening, Other)
  Sender: FDA-Public Use
  Company Number: US-AMGEN-USASP2017171782

PATIENT
  Age: 20 Year
  Sex: Male
  Weight: 70.9 kg

DRUGS (5)
  1. NPLATE [Suspect]
     Active Substance: ROMIPLOSTIM
     Indication: IMMUNE THROMBOCYTOPENIC PURPURA
     Dosage: 1MG/KG TO 0.5MG/KG, UNK
     Route: 065
     Dates: start: 201312, end: 201702
  2. NPLATE [Suspect]
     Active Substance: ROMIPLOSTIM
     Dosage: UNK
     Route: 065
     Dates: start: 201709
  3. RITUXIMAB. [Concomitant]
     Active Substance: RITUXIMAB
     Dosage: UNK
     Dates: start: 201712
  4. RITUXIMAB. [Concomitant]
     Active Substance: RITUXIMAB
     Dosage: UNK
     Dates: start: 201402
  5. RITUXIMAB. [Concomitant]
     Active Substance: RITUXIMAB
     Dosage: UNK
     Dates: start: 201502

REACTIONS (6)
  - Platelet count increased [Unknown]
  - Drug effect decreased [Not Recovered/Not Resolved]
  - Thrombocytopenia [Unknown]
  - Mouth haemorrhage [Recovered/Resolved]
  - Haemorrhage [Unknown]
  - Intentional overdose [Unknown]

NARRATIVE: CASE EVENT DATE: 201408
